FAERS Safety Report 8202726-0 (Version None)
Quarter: 2012Q1

REPORT INFORMATION
  Report Type: 
  Country: None (occurrence: None)
  Receive Date: 20120312
  Receipt Date: 20120306
  Transmission Date: 20120608
  Serious: Yes (Other)
  Sender: FDA-Public Use
  Company Number: IE-BAXTER-2011BH036310

PATIENT
  Age: 18 Month

DRUGS (2)
  1. DEXTROSE 5% AND SODIUM CHLORIDE 0.45% IN PLASTIC CONTAINER [Suspect]
     Indication: DEHYDRATION
     Route: 042
     Dates: start: 20110628, end: 20110629
  2. AUGMENTIN '125' [Suspect]
     Indication: PRODUCT USED FOR UNKNOWN INDICATION
     Route: 042
     Dates: start: 20110629, end: 20110629

REACTIONS (4)
  - OEDEMA [None]
  - INJECTION SITE EXTRAVASATION [None]
  - MEDICATION ERROR [None]
  - EXTRAVASATION [None]
